FAERS Safety Report 8245355-5 (Version None)
Quarter: 2012Q1

REPORT INFORMATION
  Report Type: 
  Country: None (occurrence: None)
  Receive Date: 20120329
  Receipt Date: 20120321
  Transmission Date: 20120608
  Serious: Yes (Hospitalization)
  Sender: FDA-Public Use
  Company Number: US-ELI_LILLY_AND_COMPANY-US201203006831

PATIENT
  Age: 77 Year
  Sex: Female

DRUGS (20)
  1. FORTEO [Suspect]
     Indication: OSTEOPOROSIS
     Dosage: 20 UG, QD
     Dates: start: 20120209, end: 20120301
  2. LANSOPRAZOLE [Concomitant]
     Dosage: 30 MG, BID
  3. HYDROCODONE BITARTRATE [Concomitant]
     Indication: HERPES ZOSTER
     Dosage: 10 MG, PRN
  4. METOCLOPRAMIDE HYDROCHLORIDE [Concomitant]
     Dosage: 10 MG, QD
  5. SERTRALINE HYDROCHLORIDE [Concomitant]
     Dosage: 50 MG, QD
  6. GABAPENTIN [Concomitant]
     Dosage: UNK, OTHER
  7. PREDNISONE [Concomitant]
     Dosage: 5 MG, QD
  8. NEOMYCIN SULFATE [Concomitant]
  9. METOPROLOL SUCCINATE [Concomitant]
     Dosage: 25 MG, QD
  10. HIDROCLOROTIAZIDE [Concomitant]
     Dosage: 25 MG, QD
  11. MECLIZINE [Concomitant]
     Dosage: 25 MG, PRN
  12. FOLIC ACID [Concomitant]
     Dosage: 1 MG, UNK
  13. POTASSIUM CHLORIDE [Concomitant]
     Dosage: 20 MEQ, QD
  14. COMBIVENT [Concomitant]
     Dosage: 2 DF, QID
  15. ADVAIR DISKUS 100/50 [Concomitant]
     Dosage: 2 DF, BID
  16. ALBUTEROL [Concomitant]
     Indication: RESPIRATORY DISORDER
     Dosage: 2.5 MG, UNK
  17. CELEBREX [Concomitant]
     Dosage: 200 MG, QD
  18. VITAMIN D [Concomitant]
     Dosage: 1000 IU, QD
  19. METHOTREXATE SODIUM [Concomitant]
     Dosage: 2.5 MG, WEEKLY (1/W)
  20. ACYCLOVIR [Concomitant]
     Dosage: 200 MG, TID

REACTIONS (3)
  - ASTHENIA [None]
  - HERPES ZOSTER [None]
  - PNEUMONIA [None]
